FAERS Safety Report 25753304 (Version 1)
Quarter: 2025Q3

REPORT INFORMATION
  Report Type: Report from Study
  Country: US (occurrence: US)
  Receive Date: 20250903
  Receipt Date: 20250903
  Transmission Date: 20251021
  Serious: Yes (Other)
  Sender: ABBVIE
  Company Number: US-ABBVIE-6441832

PATIENT
  Age: 64 Year
  Sex: Female

DRUGS (2)
  1. SKYRIZI [Suspect]
     Active Substance: RISANKIZUMAB-RZAA
     Indication: Psoriasis
     Route: 058
     Dates: start: 20250707, end: 20250707
  2. SKYRIZI [Suspect]
     Active Substance: RISANKIZUMAB-RZAA
     Route: 058
     Dates: start: 20250808, end: 20250808

REACTIONS (4)
  - Carotid artery occlusion [Unknown]
  - Dizziness [Unknown]
  - Feeling drunk [Unknown]
  - Balance disorder [Unknown]

NARRATIVE: CASE EVENT DATE: 20250101
